FAERS Safety Report 22057377 (Version 1)
Quarter: 2023Q1

REPORT INFORMATION
  Report Type: Spontaneous
  Country: US (occurrence: US)
  Receive Date: 20230303
  Receipt Date: 20230303
  Transmission Date: 20230417
  Serious: Yes (Other)
  Sender: FDA-Public Use
  Company Number: US-SPECGX-T202300704

PATIENT
  Age: 37 Year
  Sex: Female

DRUGS (1)
  1. DEXTROAMPHET SACCHARAT, AMPHET ASPARTATE, DEXTROAMPHET SULFATE AND AMP [Suspect]
     Active Substance: AMPHETAMINE ASPARTATE\AMPHETAMINE SULFATE\DEXTROAMPHETAMINE SACCHARATE\DEXTROAMPHETAMINE SULFATE
     Indication: Product used for unknown indication
     Dosage: UNK
     Route: 065

REACTIONS (8)
  - Phaeochromocytoma [Unknown]
  - Laparotomy [Unknown]
  - Adrenalectomy [Unknown]
  - Splenectomy [Unknown]
  - Pancreatectomy [Unknown]
  - Drug abuse [Unknown]
  - Malnutrition [Unknown]
  - Blood pressure systolic decreased [Unknown]
